FAERS Safety Report 6496745-2 (Version None)
Quarter: 2009Q4

REPORT INFORMATION
  Report Type: 
  Country: None (occurrence: None)
  Receive Date: 20091211
  Receipt Date: 20091201
  Transmission Date: 20100525
  Serious: Yes (Death)
  Sender: FDA-Public Use
  Company Number: 022

PATIENT
  Age: 52 Year
  Sex: Male

DRUGS (1)
  1. FAZACLO ODT [Suspect]
     Dosage: 600 MG DAILY
     Dates: start: 20050215, end: 20051007

REACTIONS (2)
  - CARDIOMYOPATHY [None]
  - MULTI-ORGAN FAILURE [None]
